FAERS Safety Report 17499312 (Version 5)
Quarter: 2023Q1

REPORT INFORMATION
  Report Type: Spontaneous
  Country: HR (occurrence: HR)
  Receive Date: 20200304
  Receipt Date: 20230331
  Transmission Date: 20230417
  Serious: Yes (Death, Life-Threatening, Hospitalization, Disabling, Other)
  Sender: FDA-Public Use
  Company Number: HR-CELLTRION INC.-2020HR020046

PATIENT

DRUGS (53)
  1. RITUXIMAB [Suspect]
     Active Substance: RITUXIMAB
     Indication: Diffuse large B-cell lymphoma stage IV
     Dosage: FIVE CYCLES (R-CHOEP PROTOCOL) AND THREE CYCLES (R-CHEVP PROTOCOL)
  2. RITUXIMAB [Suspect]
     Active Substance: RITUXIMAB
     Dosage: 5 CYCLE
  3. RITUXIMAB [Suspect]
     Active Substance: RITUXIMAB
     Indication: Diffuse large B-cell lymphoma stage IV
     Dosage: 5 CYCLE (R-CHOEP PROTOCOL)
  4. RITUXIMAB [Suspect]
     Active Substance: RITUXIMAB
     Indication: B-cell lymphoma
     Dosage: UNK
  5. RITUXIMAB [Suspect]
     Active Substance: RITUXIMAB
     Dosage: 3 CYCLE (R-CHEVP PROTOCOL)
  6. ETOPOSIDE [Suspect]
     Active Substance: ETOPOSIDE
     Indication: Diffuse large B-cell lymphoma stage IV
     Dosage: FIVE CYCLES (R-CHOEP PROTOCOL) AND THREE CYCLES (R-CHEVP PROTOCOL)
  7. ETOPOSIDE [Suspect]
     Active Substance: ETOPOSIDE
     Dosage: 5 CYCLE
  8. ETOPOSIDE [Suspect]
     Active Substance: ETOPOSIDE
     Dosage: 3 CYCLE
  9. DOXIL [Suspect]
     Active Substance: DOXORUBICIN HYDROCHLORIDE
     Indication: Product used for unknown indication
     Dosage: LIPOSOMAL INFUSION: THREE CYCLES (R-CHEVP PROTOCOL)
     Route: 042
  10. VINCRISTINE [Suspect]
     Active Substance: VINCRISTINE
     Indication: Diffuse large B-cell lymphoma stage IV
     Dosage: FIVE CYCLES (R-CHOEP PROTOCOL)
  11. VINCRISTINE [Suspect]
     Active Substance: VINCRISTINE
     Dosage: FIVE CYCLE
  12. AZACITIDINE [Suspect]
     Active Substance: AZACITIDINE
     Indication: Acute myeloid leukaemia
     Dosage: UNK, CYCLIC
  13. AZACITIDINE [Suspect]
     Active Substance: AZACITIDINE
     Dosage: CYCLICAL
  14. AZACITIDINE [Suspect]
     Active Substance: AZACITIDINE
     Dosage: THREE CYCLES
  15. ACYCLOVIR [Suspect]
     Active Substance: ACYCLOVIR
     Indication: Antibiotic prophylaxis
     Dosage: UNK
  16. THIOGUANINE [Suspect]
     Active Substance: THIOGUANINE
     Indication: Refractory anaemia with an excess of blasts
     Dosage: UNK
  17. CYCLOPHOSPHAMIDE [Suspect]
     Active Substance: CYCLOPHOSPHAMIDE
     Indication: Diffuse large B-cell lymphoma stage IV
     Dosage: UNK
     Route: 065
  18. CYCLOPHOSPHAMIDE [Suspect]
     Active Substance: CYCLOPHOSPHAMIDE
     Dosage: FIVE CYCLES (R-CHOEP PROTOCOL) AND THREE CYCLES (R-CHEVP PROTOCOL)
  19. CYCLOPHOSPHAMIDE [Suspect]
     Active Substance: CYCLOPHOSPHAMIDE
     Dosage: 3 CYCLE
  20. CYCLOPHOSPHAMIDE [Suspect]
     Active Substance: CYCLOPHOSPHAMIDE
     Dosage: 5 CYCLE
  21. ETOPOSIDE [Suspect]
     Active Substance: ETOPOSIDE
     Indication: B-cell lymphoma
     Dosage: 3 CYCLE (R-CHEVP PROTOCOL)
  22. ETOPOSIDE [Suspect]
     Active Substance: ETOPOSIDE
     Dosage: UNK
  23. DOXORUBICIN HYDROCHLORIDE [Suspect]
     Active Substance: DOXORUBICIN HYDROCHLORIDE
     Indication: Diffuse large B-cell lymphoma stage IV
     Dosage: FIVE CYCLES (R-CHOEP PROTOCOL) AND THREE CYCLES (R-CHEVP PROTOCOL)
  24. CIPROFLOXACIN [Suspect]
     Active Substance: CIPROFLOXACIN
     Indication: Antibiotic prophylaxis
     Dosage: 5 CYCLES ( R-CHOEP PROTOCOL)
  25. CIPROFLOXACIN [Suspect]
     Active Substance: CIPROFLOXACIN
     Dosage: UNK
  26. CIPROFLOXACIN [Suspect]
     Active Substance: CIPROFLOXACIN
     Indication: Product used for unknown indication
     Dosage: 3 CYCLE (R-CHEVP PROTOCOL)
  27. DOXORUBICIN [Suspect]
     Active Substance: DOXORUBICIN
     Indication: B-cell lymphoma
     Dosage: UNK
     Route: 065
  28. DOXORUBICIN [Suspect]
     Active Substance: DOXORUBICIN
     Indication: Diffuse large B-cell lymphoma stage IV
     Dosage: 5 CYCLE
  29. DOXORUBICIN [Suspect]
     Active Substance: DOXORUBICIN
     Dosage: 3 CYCLE
  30. METHYLPREDNISOLONE [Suspect]
     Active Substance: METHYLPREDNISOLONE
     Indication: Diffuse large B-cell lymphoma stage IV
     Dosage: FIVE CYCLES (R-CHOEP PROTOCOL) AND THREE CYCLES (R-CHEVP PROTOCOL)
  31. METHYLPREDNISOLONE [Suspect]
     Active Substance: METHYLPREDNISOLONE
     Dosage: 5 CYCLE
  32. VINBLASTINE [Suspect]
     Active Substance: VINBLASTINE
     Indication: B-cell lymphoma
     Dosage: UNK
     Route: 065
  33. VINBLASTINE [Suspect]
     Active Substance: VINBLASTINE
     Indication: Diffuse large B-cell lymphoma stage IV
     Dosage: 3 CYCLE
  34. VINBLASTINE [Suspect]
     Active Substance: VINBLASTINE
     Indication: Diffuse large B-cell lymphoma stage IV
     Dosage: THREE CYCLES (R-CHEVP PROTOCOL)
  35. FLUCONAZOLE [Suspect]
     Active Substance: FLUCONAZOLE
     Indication: Antibiotic prophylaxis
     Dosage: UNK
  36. METHYLPREDNISOLONE [Suspect]
     Active Substance: METHYLPREDNISOLONE
     Indication: Product used for unknown indication
     Dosage: 3 CYCLE (R-CHEVP PROTOCOL)
  37. CYCLOPHOSPHAMIDE [Suspect]
     Active Substance: CYCLOPHOSPHAMIDE
     Dosage: 3 CYCLES (R-CHEVP PROTOCOL)
  38. VINCRISTINE [Suspect]
     Active Substance: VINCRISTINE
     Indication: B-cell lymphoma
     Dosage: UNK
  39. ACYCLOVIR [Suspect]
     Active Substance: ACYCLOVIR
     Indication: Antibiotic prophylaxis
  40. CYCLOPHOSPHAMIDE [Suspect]
     Active Substance: CYCLOPHOSPHAMIDE
     Indication: B-cell lymphoma
  41. FUROSEMIDE [Concomitant]
     Active Substance: FUROSEMIDE
     Dosage: UNK
  42. DIFLUCAN [Concomitant]
     Active Substance: FLUCONAZOLE
     Dosage: UNK
  43. BENZYDAMINE [Concomitant]
     Active Substance: BENZYDAMINE
     Dosage: UNK
  44. CARVEDILOL [Concomitant]
     Active Substance: CARVEDILOL
     Dosage: UNK
  45. BELODERM [BETAMETHASONE] [Concomitant]
     Dosage: UNK
  46. DOLOKAIN [Concomitant]
     Dosage: UNK
  47. CURASEPT [CHLORHEXIDINE GLUCONATE] [Concomitant]
     Dosage: MOUTHWASH THREE TIMES A DAY
  48. CONTROLOC [Concomitant]
     Active Substance: PANTOPRAZOLE SODIUM
     Dosage: UNK
  49. RAMIPRIL [Concomitant]
     Active Substance: RAMIPRIL
     Dosage: UNK
  50. METILDIGOXIN [Concomitant]
     Active Substance: METILDIGOXIN
  51. ALDACTONE [Concomitant]
     Active Substance: SPIRONOLACTONE
     Dosage: UNK
  52. GELCLAIR [ENOXOLONE;HYALURONATE SODIUM;POVIDONE] [Concomitant]
     Dosage: UNK
  53. DIFLUCAN [Concomitant]
     Active Substance: FLUCONAZOLE
     Indication: Prophylaxis

REACTIONS (18)
  - Staphylococcal sepsis [Fatal]
  - Aspergillus infection [Fatal]
  - Sinusitis [Fatal]
  - Pancytopenia [Fatal]
  - Toxic neuropathy [Fatal]
  - Neutropenia [Fatal]
  - Congestive cardiomyopathy [Fatal]
  - Refractory anaemia with an excess of blasts [Fatal]
  - Leukaemia [Fatal]
  - Acute myeloid leukaemia [Fatal]
  - Mouth ulceration [Fatal]
  - Thrombocytopenia [Fatal]
  - Myelodysplastic syndrome [Unknown]
  - Stenotrophomonas infection [Unknown]
  - Gingival ulceration [Not Recovered/Not Resolved]
  - Toxicity to various agents [Unknown]
  - Enterococcal infection [Unknown]
  - Product use issue [Unknown]
